FAERS Safety Report 15467555 (Version 1)
Quarter: 2018Q4

REPORT INFORMATION
  Report Type: Report from Study
  Country: US (occurrence: US)
  Receive Date: 20181005
  Receipt Date: 20181005
  Transmission Date: 20190204
  Serious: Yes (Other)
  Sender: FDA-Public Use
  Company Number: US-ROCHE-2191778

PATIENT
  Age: 70 Year
  Sex: Female

DRUGS (2)
  1. OCREVUS [Suspect]
     Active Substance: OCRELIZUMAB
     Indication: PRIMARY PROGRESSIVE MULTIPLE SCLEROSIS
     Dosage: 1ST HALF DOSE ;ONGOING: NO
     Route: 065
     Dates: start: 20171120
  2. OCREVUS [Suspect]
     Active Substance: OCRELIZUMAB
     Dosage: 1ST FULL DOSE ;ONGOING: UNKNOWN
     Route: 065
     Dates: start: 20180425

REACTIONS (3)
  - Memory impairment [Not Recovered/Not Resolved]
  - Upper respiratory tract infection [Recovered/Resolved]
  - Colitis microscopic [Not Recovered/Not Resolved]

NARRATIVE: CASE EVENT DATE: 20180101
